FAERS Safety Report 4825434-2 (Version None)
Quarter: 2005Q4

REPORT INFORMATION
  Report Type: 
  Country: None (occurrence: None)
  Receive Date: 20051102
  Receipt Date: 20051102
  Transmission Date: 20060501
  Serious: Yes (Death)
  Sender: FDA-Public Use
  Company Number: None

PATIENT
  Age: 55 Year
  Sex: Male

DRUGS (3)
  1. BLEOMYCIN SULFATE [Suspect]
     Indication: PANCREATIC CARCINOMA
     Dosage: 30.4 UNITS; 1X; ITUM
     Route: 036
     Dates: start: 20050909, end: 20050909
  2. MEDPULSER ELECTROPORATION SYSTEM (MEDFULSAR ELECTROPORATION SYSTEM) [Suspect]
     Indication: PANCREATIC CARCINOMA
     Dosage: 1 X; ITUM
     Route: 036
     Dates: start: 20050909, end: 20050909
  3. METOCLOPRAMIDE [Concomitant]

REACTIONS (4)
  - ASTHENIA [None]
  - HAEMORRHAGE [None]
  - NAUSEA [None]
  - PANCREATIC HAEMORRHAGE [None]
